FAERS Safety Report 9229658 (Version 1)
Quarter: 2013Q2

REPORT INFORMATION
  Report Type: Spontaneous
  Country: US (occurrence: US)
  Receive Date: 20130415
  Receipt Date: 20130415
  Transmission Date: 20140414
  Serious: No
  Sender: FDA-Public Use
  Company Number: US-009507513-1304USA005681

PATIENT
  Age: 61 Year
  Sex: Male
  Weight: 100.23 kg

DRUGS (5)
  1. VICTRELIS [Suspect]
     Dosage: 800 MG, Q8H
     Route: 048
  2. RIBAVIRIN [Suspect]
  3. PEGASYS [Suspect]
  4. MUCINEX D [Concomitant]
  5. RANITIDINE [Concomitant]
     Dosage: 120-1200

REACTIONS (2)
  - Nasopharyngitis [Unknown]
  - Fatigue [Unknown]
